FAERS Safety Report 5030815-0 (Version None)
Quarter: 2006Q2

REPORT INFORMATION
  Report Type: 
  Country: None (occurrence: None)
  Receive Date: 20060614
  Receipt Date: 20060612
  Transmission Date: 20061013
  Serious: Yes (Hospitalization)
  Sender: FDA-Public Use
  Company Number: IT-2006-014714

PATIENT
  Age: 49 Year
  Sex: Male

DRUGS (3)
  1. ULTRAVIST 300 [Suspect]
     Indication: COMPUTERISED TOMOGRAM
     Dosage: 60 ML, 1 DOSE, IV DRIP
     Route: 041
     Dates: start: 20060607, end: 20060607
  2. ATENOLOL [Concomitant]
  3. TORVAST (ATORVASTATIN CALCIUM) [Concomitant]

REACTIONS (1)
  - ANAPHYLACTIC SHOCK [None]
